FAERS Safety Report 6631160-X (Version None)
Quarter: 2010Q1

REPORT INFORMATION
  Report Type: 
  Country: None (occurrence: None)
  Receive Date: 20100309
  Receipt Date: 20100222
  Transmission Date: 20100710
  Serious: Yes (Other)
  Sender: FDA-Public Use
  Company Number: 231875J10USA

PATIENT
  Age: 52 Year
  Sex: Female

DRUGS (3)
  1. REBIF [Suspect]
     Indication: MULTIPLE SCLEROSIS
     Dosage: 44 MCG, 3 IN 1 WEEKS, SUBCUTANEOUS
     Route: 058
     Dates: start: 20071121
  2. LOVENOX [Concomitant]
  3. CIPRO [Concomitant]

REACTIONS (8)
  - BACK PAIN [None]
  - BLOOD POTASSIUM DECREASED [None]
  - CARDIAC DISORDER [None]
  - CATHETER SITE INFECTION [None]
  - DIARRHOEA [None]
  - MOVEMENT DISORDER [None]
  - PROCEDURAL COMPLICATION [None]
  - TRAUMATIC LUNG INJURY [None]
